FAERS Safety Report 18747877 (Version 2)
Quarter: 2021Q1

REPORT INFORMATION
  Report Type: Spontaneous
  Country: CN (occurrence: CN)
  Receive Date: 20210115
  Receipt Date: 20210119
  Transmission Date: 20210419
  Serious: Yes (Other)
  Sender: FDA-Public Use
  Company Number: CN-SUNOVION-2021DSP000314

PATIENT
  Age: 27 Year
  Sex: Male
  Weight: 58 kg

DRUGS (6)
  1. LITHIUM CARBONATE. [Concomitant]
     Active Substance: LITHIUM CARBONATE
     Indication: BIPOLAR DISORDER
     Dosage: 1 TABLET
     Route: 048
     Dates: start: 20201130
  2. PROPRANOLOL [Concomitant]
     Active Substance: PROPRANOLOL HYDROCHLORIDE
     Dosage: 1 TABLET
     Route: 048
     Dates: start: 20201130
  3. FLUVOXAMINE MALEATE. [Concomitant]
     Active Substance: FLUVOXAMINE MALEATE
     Dosage: 3 TABLETS
     Route: 048
     Dates: start: 20201130
  4. MECOBALAMINE [Concomitant]
     Active Substance: METHYLCOBALAMIN
     Dosage: 1 TABLET
     Route: 048
     Dates: start: 20201130
  5. CLONAZEPAM. [Concomitant]
     Active Substance: CLONAZEPAM
     Dosage: 1 TABLET
     Route: 048
     Dates: start: 20201130
  6. LATUDA [Suspect]
     Active Substance: LURASIDONE HYDROCHLORIDE
     Indication: BIPOLAR DISORDER
     Dosage: 40 MG, QD, WITH MEAL
     Route: 048
     Dates: start: 20201130

REACTIONS (8)
  - Cerebrovascular accident [Recovering/Resolving]
  - Vomiting [Recovering/Resolving]
  - Seizure [Recovering/Resolving]
  - Somnolence [Recovering/Resolving]
  - Product use in unapproved indication [Unknown]
  - Shock [Recovering/Resolving]
  - Gait disturbance [Recovering/Resolving]
  - Nausea [Recovering/Resolving]

NARRATIVE: CASE EVENT DATE: 20201130
